FAERS Safety Report 12624507 (Version 1)
Quarter: 2016Q3

REPORT INFORMATION
  Report Type: Spontaneous
  Country: US (occurrence: None)
  Receive Date: 20160804
  Receipt Date: 20160804
  Transmission Date: 20161109
  Serious: Yes (Other)
  Sender: FDA-Public Use
  Company Number: None

PATIENT
  Age: 43 Year
  Sex: Female
  Weight: 65.77 kg

DRUGS (7)
  1. CLARITIN [Concomitant]
     Active Substance: LORATADINE
  2. CVS GUAIFESIN AND PSEUDOPHEDRINE, 600 MG CVS GENERIC MUCINEXD [Suspect]
     Active Substance: GUAIFENESIN\PSEUDOEPHEDRINE HYDROCHLORIDE
     Indication: PULMONARY CONGESTION
     Route: 048
     Dates: start: 20160701, end: 20160720
  3. CVS GUAIFESIN AND PSEUDOPHEDRINE, 600 MG CVS GENERIC MUCINEXD [Suspect]
     Active Substance: GUAIFENESIN\PSEUDOEPHEDRINE HYDROCHLORIDE
     Indication: HYPERSENSITIVITY
     Route: 048
     Dates: start: 20160701, end: 20160720
  4. ALEVE [Concomitant]
     Active Substance: NAPROXEN SODIUM
  5. OMNEPRAZOLE [Concomitant]
  6. PREVACID [Concomitant]
     Active Substance: LANSOPRAZOLE
  7. CVS GUAIFESIN AND PSEUDOPHEDRINE, 600 MG CVS GENERIC MUCINEXD [Suspect]
     Active Substance: GUAIFENESIN\PSEUDOEPHEDRINE HYDROCHLORIDE
     Indication: NASOPHARYNGITIS
     Route: 048
     Dates: start: 20160701, end: 20160720

REACTIONS (6)
  - Urticaria [None]
  - Lip swelling [None]
  - Dyspnoea [None]
  - Paraesthesia oral [None]
  - Lip exfoliation [None]
  - Product substitution issue [None]

NARRATIVE: CASE EVENT DATE: 20160720
